FAERS Safety Report 25461075 (Version 1)
Quarter: 2025Q2

REPORT INFORMATION
  Report Type: Spontaneous
  Country: US (occurrence: None)
  Receive Date: 20250618
  Receipt Date: 20250618
  Transmission Date: 20250716
  Serious: Yes (Life-Threatening, Disabling, Other)
  Sender: FDA-CTU
  Company Number: None

PATIENT
  Age: 34 Year
  Sex: Female
  Weight: 78.75 kg

DRUGS (1)
  1. LEXAPRO [Suspect]
     Active Substance: ESCITALOPRAM OXALATE
     Indication: Generalised anxiety disorder
     Dates: start: 20060101, end: 20210601

REACTIONS (13)
  - Drug withdrawal syndrome [None]
  - Suicidal ideation [None]
  - Akathisia [None]
  - Hypotension [None]
  - Loss of consciousness [None]
  - Loss of consciousness [None]
  - Eye contusion [None]
  - Alopecia [None]
  - Insomnia [None]
  - Anger [None]
  - Anxiety [None]
  - Acne cystic [None]
  - Gastrointestinal disorder [None]

NARRATIVE: CASE EVENT DATE: 20210901
